FAERS Safety Report 5531816-6 (Version None)
Quarter: 2007Q4

REPORT INFORMATION
  Report Type: 
  Country: None (occurrence: None)
  Receive Date: 20071128
  Receipt Date: 20071128
  Transmission Date: 20080405
  Serious: Yes (Other)
  Sender: FDA-Public Use
  Company Number: None

PATIENT
  Sex: Female
  Weight: 3.29 kg

DRUGS (1)
  1. VANCOMYCIN [Suspect]
     Dosage: 20MG/KG IV OVER 90
     Route: 042

REACTIONS (3)
  - AGITATION [None]
  - ERYTHEMA [None]
  - INFUSION RELATED REACTION [None]
